FAERS Safety Report 6429348-6 (Version None)
Quarter: 2009Q4

REPORT INFORMATION
  Report Type: 
  Country: None (occurrence: None)
  Receive Date: 20091105
  Receipt Date: 20081118
  Transmission Date: 20100525
  Serious: No
  Sender: FDA-Public Use
  Company Number: US-ABBOTT-08P-163-0456464-00

PATIENT
  Age: 21 Year
  Sex: Female

DRUGS (2)
  1. KALETRA [Suspect]
     Indication: ANTIRETROVIRAL THERAPY
     Dosage: 2 TABS, TWICE DAILY
     Route: 048
     Dates: start: 20080326, end: 20080820
  2. LAMIVUDINE + ZIDOVUDINE [Suspect]
     Indication: ANTIRETROVIRAL THERAPY
     Dosage: 2 TABS, DAILY
     Route: 048
     Dates: start: 20080326, end: 20080820

REACTIONS (1)
  - ALPHA 1 FOETOPROTEIN ABNORMAL [None]
